FAERS Safety Report 4609654-8 (Version None)
Quarter: 2005Q1

REPORT INFORMATION
  Report Type: 
  Country: None (occurrence: None)
  Receive Date: 20050314
  Receipt Date: 20050314
  Transmission Date: 20050727
  Serious: Yes (Other)
  Sender: FDA-Public Use
  Company Number: None

PATIENT
  Age: 38 Year
  Sex: Female
  Weight: 65.7716 kg

DRUGS (2)
  1. ELIDEL [Suspect]
     Indication: ECZEMA
     Dosage: 2 TIMES DAY TOPICAL
     Route: 061
     Dates: start: 20041110, end: 20041115
  2. ELIDEL [Suspect]
     Indication: ECZEMA
     Dosage: 2 TIMES DAY TOPICAL
     Route: 061
     Dates: start: 20041202, end: 20041204

REACTIONS (22)
  - ANXIETY [None]
  - DRUG HYPERSENSITIVITY [None]
  - EAR INFECTION [None]
  - EAR PAIN [None]
  - EXTERNAL EAR DISORDER [None]
  - FEELING ABNORMAL [None]
  - FEELING COLD [None]
  - FURUNCLE [None]
  - GASTROENTERITIS VIRAL [None]
  - GENERAL PHYSICAL HEALTH DETERIORATION [None]
  - IMMUNE SYSTEM DISORDER [None]
  - INFLAMMATION [None]
  - MALAISE [None]
  - NASOPHARYNGITIS [None]
  - PAIN [None]
  - PARAESTHESIA [None]
  - PYREXIA [None]
  - SCAB [None]
  - SCAR [None]
  - TREMOR [None]
  - VOMITING [None]
  - WOUND SECRETION [None]
